FAERS Safety Report 7681214-4 (Version None)
Quarter: 2011Q3

REPORT INFORMATION
  Report Type: 
  Country: None (occurrence: None)
  Receive Date: 20110812
  Receipt Date: 20110801
  Transmission Date: 20111222
  Serious: Yes (Other)
  Sender: FDA-Public Use
  Company Number: US-ELI_LILLY_AND_COMPANY-US201106008470

PATIENT
  Sex: Male

DRUGS (6)
  1. VYTORIN [Concomitant]
     Dosage: UNK, EACH EVENING
  2. AVALIDE [Concomitant]
     Dosage: UNK, QD
  3. HUMALOG MIX 75/25 [Suspect]
     Dosage: UNK, PRN
  4. LANTUS [Concomitant]
     Dosage: 14 U, EACH EVENING
  5. ASPIRIN [Concomitant]
     Dosage: UNK
  6. HUMALOG MIX 75/25 [Suspect]
     Indication: DIABETES MELLITUS
     Dosage: UNK UNK, PRN
     Route: 065
     Dates: start: 20080101

REACTIONS (6)
  - NARCOLEPSY [None]
  - VISION BLURRED [None]
  - BLINDNESS UNILATERAL [None]
  - EYE HAEMORRHAGE [None]
  - ROAD TRAFFIC ACCIDENT [None]
  - VISUAL IMPAIRMENT [None]
